FAERS Safety Report 6078414-6 (Version None)
Quarter: 2009Q1

REPORT INFORMATION
  Report Type: 
  Country: None (occurrence: None)
  Receive Date: 20090212
  Receipt Date: 20090205
  Transmission Date: 20090719
  Serious: Yes (Other)
  Sender: FDA-Public Use
  Company Number: US025427

PATIENT
  Sex: Male

DRUGS (1)
  1. TREANDA [Suspect]
     Dosage: CYCLICAL INTRAVENOUS
     Route: 042

REACTIONS (2)
  - LOCAL SWELLING [None]
  - SWELLING FACE [None]
